FAERS Safety Report 7669515-7 (Version None)
Quarter: 2011Q3

REPORT INFORMATION
  Report Type: 
  Country: None (occurrence: None)
  Receive Date: 20110808
  Receipt Date: 20110803
  Transmission Date: 20111222
  Serious: Yes (Other)
  Sender: FDA-Public Use
  Company Number: GB-MERCK-1108GBR00020

PATIENT
  Age: 72 Year
  Sex: Female
  Weight: 73 kg

DRUGS (5)
  1. ZOCOR [Suspect]
     Route: 048
     Dates: start: 20110726
  2. LISINOPRIL [Concomitant]
     Route: 048
     Dates: start: 20110428
  3. CALCIUM CARBONATE [Concomitant]
     Route: 065
     Dates: start: 20110627
  4. ASPIRIN [Concomitant]
     Route: 065
     Dates: start: 20110527
  5. ACETAMINOPHEN [Concomitant]
     Route: 065
     Dates: start: 20110704

REACTIONS (1)
  - JOINT SWELLING [None]
